FAERS Safety Report 14903975 (Version 1)
Quarter: 2018Q2

REPORT INFORMATION
  Report Type: Spontaneous
  Country: US (occurrence: US)
  Receive Date: 20180516
  Receipt Date: 20180516
  Transmission Date: 20180711
  Serious: No
  Sender: FDA-Public Use
  Company Number: US-COLLEGIUM PHARMACEUTICAL, INC.-2018CGM00103

PATIENT
  Sex: Female
  Weight: 72.56 kg

DRUGS (1)
  1. XTAMPZA ER [Suspect]
     Active Substance: OXYCODONE
     Indication: BACK PAIN
     Dosage: 18 MG, 2X/DAY
     Route: 048
     Dates: start: 20180314, end: 20180405

REACTIONS (2)
  - Pruritus [Unknown]
  - Urticaria [Unknown]
